FAERS Safety Report 21398043 (Version 1)
Quarter: 2022Q3

REPORT INFORMATION
  Report Type: Spontaneous
  Country: US (occurrence: US)
  Receive Date: 20220930
  Receipt Date: 20220930
  Transmission Date: 20221026
  Serious: No
  Sender: FDA-Public Use
  Company Number: US-SA-SAC20220923001252

PATIENT
  Age: 51 Year
  Sex: Female

DRUGS (5)
  1. ARAVA [Suspect]
     Active Substance: LEFLUNOMIDE
     Dosage: UNK
     Route: 065
  2. RINVOQ [Concomitant]
     Active Substance: UPADACITINIB
  3. HUMIRA [Concomitant]
     Active Substance: ADALIMUMAB
  4. METHOTREXATE [Concomitant]
     Active Substance: METHOTREXATE
  5. RASUVO [Concomitant]
     Active Substance: METHOTREXATE SODIUM

REACTIONS (2)
  - Feeling abnormal [Unknown]
  - Therapeutic response shortened [Unknown]
